FAERS Safety Report 23561842 (Version 1)
Quarter: 2024Q1

REPORT INFORMATION
  Report Type: Report from Study
  Country: US (occurrence: US)
  Receive Date: 20240225
  Receipt Date: 20240225
  Transmission Date: 20240409
  Serious: Yes (Other)
  Sender: FDA-Public Use
  Company Number: US-ABBVIE-5651868

PATIENT
  Sex: Female

DRUGS (1)
  1. IMBRUVICA [Suspect]
     Active Substance: IBRUTINIB
     Indication: B-cell small lymphocytic lymphoma
     Route: 048
     Dates: start: 20190105

REACTIONS (9)
  - Cerebral arteriosclerosis [Unknown]
  - Hypoaesthesia [Unknown]
  - Balance disorder [Unknown]
  - Onychoclasis [Unknown]
  - Weight decreased [Unknown]
  - Cerebral artery occlusion [Unknown]
  - Fall [Unknown]
  - Head injury [Unknown]
  - Spinal stenosis [Unknown]
